FAERS Safety Report 5132466-6 (Version None)
Quarter: 2006Q4

REPORT INFORMATION
  Report Type: 
  Country: None (occurrence: None)
  Receive Date: 20061017
  Receipt Date: 20061005
  Transmission Date: 20070319
  Serious: Yes (Hospitalization)
  Sender: FDA-Public Use
  Company Number: 230804

PATIENT
  Age: 41 Year
  Sex: Male

DRUGS (9)
  1. AVASTIN [Suspect]
     Indication: OESOPHAGEAL CARCINOMA
     Dates: start: 20060918, end: 20060925
  2. IRINOTECAN HCL [Suspect]
     Indication: OESOPHAGEAL CARCINOMA
     Dates: start: 20060918, end: 20060925
  3. CISPLATIN [Suspect]
     Indication: OESOPHAGEAL CARCINOMA
     Dates: start: 20060918, end: 20060925
  4. ADVAIR DISKUS 100/50 [Concomitant]
  5. ALBUTEROL (ALBUTEROL/ALBUTEROL SULFATE) [Concomitant]
  6. FAMCICLOVIR (FAMCICLOVIR) [Concomitant]
  7. IRON SUPPLEMENT (IRON NOS) [Concomitant]
  8. MULTI-VITAMINS [Concomitant]
  9. OMEPRAZOLE [Concomitant]

REACTIONS (1)
  - FEBRILE NEUTROPENIA [None]
